FAERS Safety Report 7841903-5 (Version None)
Quarter: 2011Q4

REPORT INFORMATION
  Report Type: 
  Country: None (occurrence: None)
  Receive Date: 20111025
  Receipt Date: 20111018
  Transmission Date: 20120403
  Serious: Yes (Other)
  Sender: FDA-Public Use
  Company Number: PHHY2011CA84076

PATIENT
  Sex: Female

DRUGS (3)
  1. CLOZARIL [Suspect]
     Route: 048
     Dates: start: 20030323
  2. CLOZARIL [Suspect]
     Indication: SCHIZOPHRENIA
     Dosage: 100 MG, TID
     Route: 048
     Dates: start: 20080228
  3. CELEXA [Concomitant]
     Dosage: 20 MG, DAILY

REACTIONS (2)
  - NEPHROLITHIASIS [None]
  - KIDNEY INFECTION [None]
